FAERS Safety Report 24316659 (Version 3)
Quarter: 2024Q4

REPORT INFORMATION
  Report Type: Spontaneous
  Country: CN (occurrence: CN)
  Receive Date: 20240913
  Receipt Date: 20241029
  Transmission Date: 20250115
  Serious: Yes (Death, Hospitalization, Other)
  Sender: PFIZER
  Company Number: CN-PFIZER INC-PV202400119439

PATIENT
  Age: 38 Year
  Sex: Male

DRUGS (4)
  1. CYTARABINE [Suspect]
     Active Substance: CYTARABINE
     Indication: Acute myeloid leukaemia
     Dosage: 167 MG, 1X/DAY (D1-4)
     Route: 041
     Dates: start: 20240805
  2. CYTARABINE [Suspect]
     Active Substance: CYTARABINE
     Dosage: 1.67 G, 2X/DAY (D5-7)
     Route: 041
     Dates: end: 20240808
  3. OMACETAXINE MEPESUCCINATE [Suspect]
     Active Substance: OMACETAXINE MEPESUCCINATE
     Indication: Acute myeloid leukaemia
     Dosage: 3.3 MG, 1X/DAY (D1-7)
     Route: 041
     Dates: start: 20240805, end: 20240811
  4. DAUNORUBICIN HYDROCHLORIDE [Suspect]
     Active Substance: DAUNORUBICIN HYDROCHLORIDE
     Indication: Acute myeloid leukaemia
     Dosage: 66 MG, 1X/DAY (D1-3)
     Route: 042
     Dates: start: 20240805, end: 20240808

REACTIONS (2)
  - Myelosuppression [Fatal]
  - Neoplasm progression [Unknown]

NARRATIVE: CASE EVENT DATE: 20240811
